FAERS Safety Report 8113825-6 (Version None)
Quarter: 2012Q1

REPORT INFORMATION
  Report Type: 
  Country: None (occurrence: None)
  Receive Date: 20120203
  Receipt Date: 20120130
  Transmission Date: 20120608
  Serious: No
  Sender: FDA-Public Use
  Company Number: CHPA2012FR002481

PATIENT
  Sex: Male

DRUGS (2)
  1. LAMISIL [Suspect]
     Indication: SKIN ODOUR ABNORMAL
     Dosage: EVERY DAY DURING 4 CONSECUTIVE WEEKS, THEN 2 WEEKS OF BREAK, FOR 2-3 YEARS
     Route: 061
  2. LAMISIL                            /00992601/ [Concomitant]
     Dosage: UNK, UNK
     Route: 048

REACTIONS (4)
  - OFF LABEL USE [None]
  - THERAPEUTIC RESPONSE UNEXPECTED [None]
  - INCORRECT DRUG ADMINISTRATION DURATION [None]
  - ONYCHOCLASIS [None]
